FAERS Safety Report 4704510-9 (Version None)
Quarter: 2005Q3

REPORT INFORMATION
  Report Type: 
  Country: None (occurrence: None)
  Receive Date: 20050629
  Receipt Date: 20050623
  Transmission Date: 20060218
  Serious: Yes (Death, Hospitalization)
  Sender: FDA-Public Use
  Company Number: 2005088500

PATIENT
  Age: 85 Year
  Sex: Female

DRUGS (7)
  1. CELEBREX [Suspect]
     Indication: OSTEOARTHRITIS
     Dosage: 200 MG (1 IN 1 D), ORAL
     Route: 048
     Dates: start: 20041019, end: 20041101
  2. ACETAMINOPHEN [Concomitant]
  3. STILNOX (ZOLPIDEM) [Concomitant]
  4. KERLONE [Concomitant]
  5. ALDACTAZINE (ALTIZIDE, SPIRONOLACTONE) [Concomitant]
  6. ALL OTHER THERAPEUTIC PRODUCTS (ALL OTHER THERAPEUTIC PRODUCTS) [Concomitant]
  7. ACETAMINOPHEN [Concomitant]

REACTIONS (1)
  - CARDIAC FAILURE [None]
